FAERS Safety Report 15517046 (Version 1)
Quarter: 2018Q4

REPORT INFORMATION
  Report Type: Report from Study
  Country: US (occurrence: US)
  Receive Date: 20181017
  Receipt Date: 20181017
  Transmission Date: 20190205
  Serious: Yes (Other)
  Sender: FDA-Public Use
  Company Number: US-TEVA-2018-US-962875

PATIENT
  Age: 73 Year
  Sex: Female

DRUGS (4)
  1. COPAXONE [Suspect]
     Active Substance: GLATIRAMER ACETATE
     Route: 058
     Dates: start: 20060329
  2. COPAXONE [Suspect]
     Active Substance: GLATIRAMER ACETATE
     Route: 058
     Dates: start: 20161114, end: 20180126
  3. COPAXONE [Suspect]
     Active Substance: GLATIRAMER ACETATE
     Indication: MULTIPLE SCLEROSIS
     Route: 058
     Dates: start: 20050301
  4. COPAXONE [Suspect]
     Active Substance: GLATIRAMER ACETATE
     Route: 058
     Dates: start: 20141029, end: 20160520

REACTIONS (11)
  - Cystitis [Unknown]
  - Injection site necrosis [Recovered/Resolved]
  - Micturition urgency [Unknown]
  - Feeling abnormal [Unknown]
  - Hypertonic bladder [Unknown]
  - Arthritis [Unknown]
  - Rheumatoid arthritis [Unknown]
  - Blood pressure systolic increased [Recovering/Resolving]
  - Dysuria [Unknown]
  - Memory impairment [Unknown]
  - Pollakiuria [Unknown]

NARRATIVE: CASE EVENT DATE: 201605
